FAERS Safety Report 5040158-7 (Version None)
Quarter: 2006Q2

REPORT INFORMATION
  Report Type: 
  Country: None (occurrence: None)
  Receive Date: 20060630
  Receipt Date: 20060619
  Transmission Date: 20061013
  Serious: Yes (Other)
  Sender: FDA-Public Use
  Company Number: 2006SE03469

PATIENT
  Age: 70 Year
  Sex: Male

DRUGS (3)
  1. NEXIUM [Suspect]
     Route: 042
  2. CEPHALOSPORIN [Suspect]
  3. MEDICINALPRODUCT NOT SPECIFIED BY SENDER [Concomitant]

REACTIONS (1)
  - CRYPTOGENIC ORGANIZING PNEUMONIA [None]
